FAERS Safety Report 6964894-8 (Version None)
Quarter: 2010Q3

REPORT INFORMATION
  Report Type: 
  Country: None (occurrence: None)
  Receive Date: 20100903
  Receipt Date: 20100826
  Transmission Date: 20110219
  Serious: Yes (Hospitalization)
  Sender: FDA-Public Use
  Company Number: DE-ELI_LILLY_AND_COMPANY-DE201006005697

PATIENT
  Sex: Female

DRUGS (6)
  1. BYETTA [Suspect]
     Indication: TYPE 2 DIABETES MELLITUS
     Dosage: 10 UG, 2/D
     Route: 058
     Dates: start: 20100311
  2. METFORMIN [Concomitant]
  3. IBUPROFEN [Concomitant]
     Dosage: UNK, AS NEEDED
  4. NOVALGIN [Concomitant]
     Dosage: UNK, AS NEEDED
  5. LEVOTHYROXINE SODIUM [Concomitant]
  6. RAMIPRIL [Concomitant]

REACTIONS (7)
  - BILIARY COLIC [None]
  - HEPATIC CIRRHOSIS [None]
  - HOSPITALISATION [None]
  - NASOPHARYNGITIS [None]
  - NAUSEA [None]
  - PAIN [None]
  - POLLAKIURIA [None]
